FAERS Safety Report 20208676 (Version 5)
Quarter: 2022Q4

REPORT INFORMATION
  Report Type: Spontaneous
  Country: US (occurrence: US)
  Receive Date: 20211220
  Receipt Date: 20221024
  Transmission Date: 20230112
  Serious: Yes (Hospitalization, Other)
  Sender: FDA-Public Use
  Company Number: US-PFIZER INC-202101786960

PATIENT
  Age: 60 Year
  Sex: Female

DRUGS (3)
  1. XELJANZ XR [Suspect]
     Active Substance: TOFACITINIB CITRATE
     Indication: Rheumatoid arthritis
     Dosage: 11 MG, 1X/DAY
     Route: 048
     Dates: start: 202110
  2. XELJANZ XR [Suspect]
     Active Substance: TOFACITINIB CITRATE
     Dosage: 11 MG, 1X/DAY
     Route: 048
     Dates: start: 202201
  3. METHOTREXATE [Concomitant]
     Active Substance: METHOTREXATE
     Dosage: UNK
     Route: 048

REACTIONS (17)
  - Intestinal perforation [Unknown]
  - Sepsis [Unknown]
  - Coccidioidomycosis [Unknown]
  - Therapeutic product effect incomplete [Unknown]
  - Pain [Unknown]
  - Condition aggravated [Unknown]
  - Impaired quality of life [Unknown]
  - Hypertension [Recovered/Resolved]
  - Weight increased [Unknown]
  - Stress [Unknown]
  - Insomnia [Unknown]
  - Anal sphincter atony [Unknown]
  - Discouragement [Unknown]
  - Infection [Unknown]
  - Muscular weakness [Unknown]
  - Inflammation [Unknown]
  - Pyrexia [Unknown]

NARRATIVE: CASE EVENT DATE: 20210101
